FAERS Safety Report 9750121 (Version 1)
Quarter: 2013Q4

REPORT INFORMATION
  Report Type: Spontaneous
  Country: US (occurrence: US)
  Receive Date: 20131212
  Receipt Date: 20131212
  Transmission Date: 20140711
  Serious: No
  Sender: FDA-Public Use
  Company Number: US-GILEAD-US-CVT-100033

PATIENT
  Age: 68 Year
  Sex: Female
  Weight: 143.76 kg

DRUGS (13)
  1. RANEXA [Suspect]
     Indication: PRODUCT USED FOR UNKNOWN INDICATION
  2. AMLODIPINE [Concomitant]
     Indication: BLOOD PRESSURE
  3. AMLODIPINE [Concomitant]
     Indication: CORONARY ARTERY DISEASE
  4. LISINOPRIL                         /00894001/ [Concomitant]
     Indication: BLOOD PRESSURE
  5. LISINOPRIL                         /00894001/ [Concomitant]
     Indication: CARDIAC DISORDER
  6. CLOPIDOGREL                        /01220701/ [Concomitant]
     Indication: CORONARY ARTERY DISEASE
  7. CARVEDILOL [Concomitant]
     Indication: CARDIAC DISORDER
  8. LEVOXYL [Concomitant]
     Indication: THYROID DISORDER
  9. FUROSEMIDE                         /00032601/ [Concomitant]
     Indication: BLOOD PRESSURE
  10. ZOLOFT [Concomitant]
     Indication: DEPRESSION
  11. NOVOLIN N [Concomitant]
     Indication: DIABETES MELLITUS
  12. FLEXERIL [Concomitant]
     Indication: MYALGIA
  13. POTASSIUM                          /00031401/ [Concomitant]
     Indication: BLOOD POTASSIUM DECREASED

REACTIONS (1)
  - Hypoaesthesia [Recovered/Resolved]
